FAERS Safety Report 9736246 (Version 1)
Quarter: 2013Q4

REPORT INFORMATION
  Report Type: Report from Study
  Country: US (occurrence: US)
  Receive Date: 20131206
  Receipt Date: 20131206
  Transmission Date: 20140711
  Serious: Yes (Death)
  Sender: FDA-Public Use
  Company Number: US-ROCHE-1308630

PATIENT
  Sex: Female
  Weight: 99.15 kg

DRUGS (2)
  1. AVASTIN [Suspect]
     Indication: OVARIAN CANCER
     Dosage: DOSE: BEVACIZUMAB INJECTION 971 MG (10 MG/KG)
     Route: 042
     Dates: start: 20100802, end: 20110705
  2. DOCETAXEL [Concomitant]

REACTIONS (1)
  - Disease progression [Fatal]
